FAERS Safety Report 22837555 (Version 3)
Quarter: 2025Q1

REPORT INFORMATION
  Report Type: Spontaneous
  Country: US (occurrence: US)
  Receive Date: 20230818
  Receipt Date: 20250208
  Transmission Date: 20250408
  Serious: No
  Sender: LUPIN
  Company Number: US-LUPIN PHARMACEUTICALS INC.-2023-06769

PATIENT

DRUGS (1)
  1. ALBUTEROL SULFATE [Suspect]
     Active Substance: ALBUTEROL SULFATE
     Indication: Asthma
     Dosage: UNK, TID (2 PUFFS 3 TIMES A DAY AS NEEDED)
     Dates: start: 202307

REACTIONS (3)
  - Pruritus [Unknown]
  - Device delivery system issue [Unknown]
  - Drug dose omission by device [Unknown]
